FAERS Safety Report 17146559 (Version 1)
Quarter: 2019Q4

REPORT INFORMATION
  Report Type: Spontaneous
  Country: CA (occurrence: CA)
  Receive Date: 20191212
  Receipt Date: 20191212
  Transmission Date: 20200122
  Serious: Yes (Hospitalization)
  Sender: FDA-Public Use
  Company Number: CA-UNITED THERAPEUTICS-UNT-2019-019993

PATIENT
  Age: 24 Year
  Sex: Female

DRUGS (1)
  1. REMODULIN [Suspect]
     Active Substance: TREPROSTINIL
     Indication: PULMONARY ARTERIAL HYPERTENSION
     Dosage: UNK, CONTINUING
     Route: 041

REACTIONS (4)
  - Staphylococcal infection [Not Recovered/Not Resolved]
  - Catheter site pain [Unknown]
  - Catheter site erythema [Unknown]
  - Catheter site infection [Unknown]

NARRATIVE: CASE EVENT DATE: 20191129
